FAERS Safety Report 21917170 (Version 2)
Quarter: 2023Q1

REPORT INFORMATION
  Report Type: Spontaneous
  Country: US (occurrence: US)
  Receive Date: 20230126
  Receipt Date: 20230306
  Transmission Date: 20230418
  Serious: Yes (Life-Threatening, Other)
  Sender: FDA-Public Use
  Company Number: US-PFIZER INC-PV202300013372

PATIENT
  Age: 67 Year
  Sex: Female

DRUGS (1)
  1. LEVOPHED [Suspect]
     Active Substance: NOREPINEPHRINE BITARTRATE
     Indication: Hypotension
     Dosage: UNK, INFUSION
     Route: 041

REACTIONS (3)
  - Vasoconstriction [Recovered/Resolved]
  - Cyanosis [Recovered/Resolved]
  - Infusion site extravasation [Recovered/Resolved]
